FAERS Safety Report 23680008 (Version 1)
Quarter: 2024Q1

REPORT INFORMATION
  Report Type: Spontaneous
  Country: US (occurrence: US)
  Receive Date: 20240327
  Receipt Date: 20240327
  Transmission Date: 20240410
  Serious: Yes (Other)
  Sender: FDA-Public Use
  Company Number: US-STAQ Pharma, Inc-2154945

PATIENT
  Age: 6 Year
  Sex: Female
  Weight: 19.091 kg

DRUGS (1)
  1. DESMOPRESSIN ACETATE [Suspect]
     Active Substance: DESMOPRESSIN ACETATE
     Indication: Von Willebrand^s disease
     Route: 045
     Dates: start: 20240308, end: 20240315

REACTIONS (4)
  - Fatigue [Recovered/Resolved]
  - Decreased appetite [Recovered/Resolved]
  - Decreased appetite [Recovered/Resolved]
  - Fatigue [Recovered/Resolved]

NARRATIVE: CASE EVENT DATE: 20240308
